FAERS Safety Report 4476842-3 (Version None)
Quarter: 2004Q4

REPORT INFORMATION
  Report Type: 
  Country: None (occurrence: None)
  Receive Date: 20041013
  Receipt Date: 20041004
  Transmission Date: 20050328
  Serious: Yes (Other)
  Sender: FDA-Public Use
  Company Number: 200414750BCC

PATIENT
  Age: 79 Year
  Sex: Female

DRUGS (1)
  1. ASPIRIN [Suspect]
     Dosage: 81 MG, QD, ORAL
     Route: 048

REACTIONS (2)
  - ABDOMINAL TENDERNESS [None]
  - FRACTURE [None]
